FAERS Safety Report 19946315 (Version 1)
Quarter: 2021Q4

REPORT INFORMATION
  Report Type: Report from Study
  Country: JP (occurrence: JP)
  Receive Date: 20211012
  Receipt Date: 20211012
  Transmission Date: 20220303
  Serious: Yes (Life-Threatening)
  Sender: FDA-Public Use
  Company Number: JP-ACCORD-241287

PATIENT
  Age: 55 Year
  Sex: Male

DRUGS (3)
  1. FLUOROURACIL [Suspect]
     Active Substance: FLUOROURACIL
     Indication: Nasal cavity cancer
     Dosage: 120 HR INFUSION 600MG/M2/D DAY 1 TO 5
     Route: 042
  2. CISPLATIN [Suspect]
     Active Substance: CISPLATIN
     Indication: Nasal cavity cancer
     Dosage: 60 MG/M2 DAY2
  3. DOCETAXEL [Suspect]
     Active Substance: DOCETAXEL
     Indication: Nasal cavity cancer
     Dosage: 50 MG/M2 DAY2
     Route: 040

REACTIONS (2)
  - Blood creatinine increased [Unknown]
  - Mucosal inflammation [Unknown]
